FAERS Safety Report 16040010 (Version 2)
Quarter: 2020Q3

REPORT INFORMATION
  Report Type: Report from Study
  Country: None (occurrence: BR)
  Receive Date: 20190306
  Receipt Date: 20200909
  Transmission Date: 20201102
  Serious: Yes (Other)
  Sender: FDA-Public Use
  Company Number: BR-ABBVIE-19K-020-2688281-00

PATIENT
  Age: 28 Year
  Sex: Female
  Weight: 52 kg

DRUGS (5)
  1. HUMIRA [Suspect]
     Active Substance: ADALIMUMAB
     Dosage: LOADING DOSE,2 APPLICATIONS
     Route: 058
  2. PENTASA [Concomitant]
     Active Substance: MESALAMINE
     Indication: CROHN^S DISEASE
  3. HUMIRA [Suspect]
     Active Substance: ADALIMUMAB
     Indication: CROHN^S DISEASE
     Dosage: LOADING DOSE,4 APPLICATIONS
     Route: 058
     Dates: start: 20150616, end: 20150616
  4. HUMIRA [Suspect]
     Active Substance: ADALIMUMAB
     Route: 058
  5. DEFLAZACORT [Concomitant]
     Active Substance: DEFLAZACORT
     Indication: CROHN^S DISEASE

REACTIONS (7)
  - Pulmonary oedema [Unknown]
  - Pneumonia [Recovered/Resolved]
  - Back pain [Unknown]
  - Lung disorder [Recovering/Resolving]
  - Pleural effusion [Recovered/Resolved]
  - Fear [Unknown]
  - Pneumonia [Recovered/Resolved]

NARRATIVE: CASE EVENT DATE: 201812
